FAERS Safety Report 11391899 (Version 1)
Quarter: 2015Q3

REPORT INFORMATION
  Report Type: Spontaneous
  Country: GB (occurrence: None)
  Receive Date: 20150814
  Receipt Date: 20150814
  Transmission Date: 20151125
  Serious: Yes (Death, Other)
  Sender: FDA-Public Use
  Company Number: 2015RR-101404

PATIENT
  Age: 48 Year
  Sex: Male
  Weight: 79 kg

DRUGS (19)
  1. TRIHEXYPHENIDYL (TRIHEXYPHENIDYL) [Concomitant]
     Active Substance: TRIHEXYPHENIDYL
  2. ACRIVASTINE [Concomitant]
     Active Substance: ACRIVASTINE
  3. ATORVASTATIN [Concomitant]
     Active Substance: ATORVASTATIN
  4. CROMOGLICATE SODIUM [Concomitant]
     Active Substance: CROMOLYN SODIUM
  5. ZOPICLONE (ZOPICLONE) [Suspect]
     Active Substance: ZOPICLONE
     Indication: PRODUCT USED FOR UNKNOWN INDICATION
  6. GLICLAZIDE (GLICLAZIDE) [Concomitant]
     Active Substance: GLICLAZIDE
  7. BECLOMETASONE [Concomitant]
     Active Substance: BECLOMETHASONE DIPROPIONATE
  8. METOCLOPRAMIDE (METOCLOPRAMIDE) [Concomitant]
     Active Substance: METOCLOPRAMIDE
  9. DIAZEPAM. [Concomitant]
     Active Substance: DIAZEPAM
  10. LACTULOSE (LACTULOSE) [Concomitant]
     Active Substance: LACTULOSE
  11. LANSOPRAZOLE (LANSOPRAZOLE) [Concomitant]
     Active Substance: LANSOPRAZOLE
  12. LISINOPRIL (LISINOPRIL) [Concomitant]
     Active Substance: LISINOPRIL
  13. SALBUTAMOL (SALBUTAMOL) [Concomitant]
     Active Substance: ALBUTEROL
  14. TRAMADOL (TRAMADOL) UNKNOWN [Suspect]
     Active Substance: TRAMADOL
     Indication: PRODUCT USED FOR UNKNOWN INDICATION
  15. ZAPONEX (CLOZAPINE) [Suspect]
     Active Substance: CLOZAPINE
     Indication: SCHIZOPHRENIA
     Route: 048
     Dates: start: 20140304, end: 20150505
  16. ARIPIPRAZOLE. [Concomitant]
     Active Substance: ARIPIPRAZOLE
  17. ACIDEX (CALCIUM CARBONATE, SODIUM ALGINATE, SODIUM BICARBONATE) [Concomitant]
  18. SAXAGLIPTIN (SAXAGLIPTIN) [Concomitant]
  19. SERETIDE [Concomitant]
     Active Substance: FLUTICASONE FUROATE\SALMETEROL XINAFOATE

REACTIONS (11)
  - Antipsychotic drug level increased [None]
  - Cardiomegaly [None]
  - Toxicity to various agents [None]
  - Pulmonary oedema [None]
  - Hepatomegaly [None]
  - Renal disorder [None]
  - Spleen congestion [None]
  - Aortic arteriosclerosis [None]
  - Pulmonary congestion [None]
  - Arteriosclerosis coronary artery [None]
  - Platelet count increased [None]

NARRATIVE: CASE EVENT DATE: 20150303
